FAERS Safety Report 8547742-4 (Version None)
Quarter: 2012Q3

REPORT INFORMATION
  Report Type: 
  Country: None (occurrence: None)
  Receive Date: 20120727
  Receipt Date: 20120706
  Transmission Date: 20120928
  Serious: No
  Sender: FDA-Public Use
  Company Number: US-ASTRAZENECA-2012SE17024

PATIENT
  Age: 48 Year
  Sex: Male

DRUGS (2)
  1. SEROQUEL [Suspect]
     Route: 048
  2. RHINOCORT [Suspect]
     Route: 045

REACTIONS (4)
  - INTENTIONAL DRUG MISUSE [None]
  - INSOMNIA [None]
  - DRUG DOSE OMISSION [None]
  - OSTEOMYELITIS [None]
